FAERS Safety Report 14332119 (Version 5)
Quarter: 2018Q1

REPORT INFORMATION
  Report Type: Spontaneous
  Country: JP (occurrence: JP)
  Receive Date: 20171228
  Receipt Date: 20180308
  Transmission Date: 20180509
  Serious: Yes (Other)
  Sender: FDA-Public Use
  Company Number: JP-PFIZER INC-2017547207

PATIENT
  Age: 67 Year
  Sex: Female

DRUGS (2)
  1. MIGLITOL. [Suspect]
     Active Substance: MIGLITOL
     Indication: DIABETES MELLITUS
     Dosage: 150 MG, DAILY
     Route: 048
     Dates: start: 20171003, end: 20171012
  2. SEIBULE [Concomitant]
     Active Substance: MIGLITOL
     Dosage: 150 MG, DAILY
     Dates: start: 20170602

REACTIONS (1)
  - Erythema multiforme [Recovered/Resolved]

NARRATIVE: CASE EVENT DATE: 20171007
